FAERS Safety Report 5453512-6 (Version None)
Quarter: 2007Q3

REPORT INFORMATION
  Report Type: 
  Country: None (occurrence: None)
  Receive Date: 20070913
  Receipt Date: 20070827
  Transmission Date: 20080115
  Serious: Yes (Other)
  Sender: FDA-Public Use
  Company Number: 20070219 /

PATIENT
  Age: 49 Year
  Sex: Female

DRUGS (1)
  1. VENOFER [Suspect]
     Indication: IRON DEFICIENCY
     Dosage: INTRAVENOUS
     Route: 042

REACTIONS (3)
  - EXTRAVASATION [None]
  - PHLEBITIS [None]
  - WRONG TECHNIQUE IN DRUG USAGE PROCESS [None]
